FAERS Safety Report 7083383-6 (Version None)
Quarter: 2010Q4

REPORT INFORMATION
  Report Type: 
  Country: None (occurrence: None)
  Receive Date: 20101104
  Receipt Date: 20101101
  Transmission Date: 20110411
  Serious: Yes (Life-Threatening, Other)
  Sender: FDA-Public Use
  Company Number: GB-ALLERGAN-1014015US

PATIENT
  Age: 78 Year
  Sex: Female

DRUGS (1)
  1. BOTOX [Suspect]
     Indication: BLADDER DISORDER
     Dosage: 200 UNITS, SINGLE
     Dates: start: 20101018, end: 20101018

REACTIONS (5)
  - EPISTAXIS [None]
  - HAEMOGLOBIN DECREASED [None]
  - HEADACHE [None]
  - MUSCULAR WEAKNESS [None]
  - SYNCOPE [None]
